FAERS Safety Report 9641802 (Version 2)
Quarter: 2013Q4

REPORT INFORMATION
  Report Type: Report from Study
  Country: US (occurrence: US)
  Receive Date: 20131023
  Receipt Date: 20131213
  Transmission Date: 20140711
  Serious: Yes (Other)
  Sender: FDA-Public Use
  Company Number: US-ROCHE-1291575

PATIENT
  Age: 53 Year
  Sex: Female
  Weight: 118.04 kg

DRUGS (5)
  1. ACTEMRA [Suspect]
     Indication: PRODUCT USED FOR UNKNOWN INDICATION
     Dosage: THIS DRUG WAS STARTED A WHILE AGO.
     Route: 042
  2. COUMADIN [Concomitant]
  3. WARFARIN [Concomitant]
  4. SYNTHROID [Concomitant]
  5. TRILEPTAL [Concomitant]

REACTIONS (6)
  - Blood cholesterol increased [Unknown]
  - Deep vein thrombosis [Unknown]
  - Drug ineffective [Unknown]
  - Lower limb fracture [Not Recovered/Not Resolved]
  - Therapeutic response decreased [Unknown]
  - Pain in extremity [Unknown]
